FAERS Safety Report 14243169 (Version 7)
Quarter: 2019Q1

REPORT INFORMATION
  Report Type: Report from Study
  Country: US (occurrence: US)
  Receive Date: 20171201
  Receipt Date: 20190212
  Transmission Date: 20190417
  Serious: Yes (Hospitalization, Other)
  Sender: FDA-Public Use
  Company Number: US-SA-2017SA206746

PATIENT
  Age: 46 Year
  Sex: Male

DRUGS (6)
  1. AGALSIDASE BETA [Suspect]
     Active Substance: AGALSIDASE BETA
     Dosage: 80 MG, QOW
     Route: 041
     Dates: start: 20120720
  2. AGALSIDASE BETA [Suspect]
     Active Substance: AGALSIDASE BETA
     Dosage: 70 MG, QOW
     Route: 041
  3. AGALSIDASE BETA [Suspect]
     Active Substance: AGALSIDASE BETA
     Dosage: 75 (UNITS: UNSPECIFIED) Q2
     Route: 041
  4. AGALSIDASE BETA [Suspect]
     Active Substance: AGALSIDASE BETA
     Indication: FABRY^S DISEASE
     Dosage: 80 MG, QOW
     Route: 041
     Dates: start: 20120720
  5. AGALSIDASE BETA [Suspect]
     Active Substance: AGALSIDASE BETA
     Dosage: 80 MG, QOW
     Route: 041
     Dates: start: 20120720
  6. AGALSIDASE BETA [Suspect]
     Active Substance: AGALSIDASE BETA
     Dosage: 80 MG, QOW
     Route: 041
     Dates: start: 20120720

REACTIONS (5)
  - Weight fluctuation [Unknown]
  - Headache [Unknown]
  - Seizure [Recovered/Resolved]
  - Staphylococcal infection [Not Recovered/Not Resolved]
  - Cardiac infection [Not Recovered/Not Resolved]

NARRATIVE: CASE EVENT DATE: 2016
